FAERS Safety Report 4938765-2 (Version None)
Quarter: 2006Q1

REPORT INFORMATION
  Report Type: 
  Country: None (occurrence: None)
  Receive Date: 20060306
  Receipt Date: 20060221
  Transmission Date: 20060701
  Serious: Yes (Other)
  Sender: FDA-Public Use
  Company Number: 222334

PATIENT
  Age: 53 Year
  Sex: Male
  Weight: 52.2 kg

DRUGS (3)
  1. RAPTIVA [Suspect]
     Indication: PSORIASIS
     Dosage: 1.5 MG, 1/WEEK, SUBCUTANEOUS
     Route: 058
  2. ZITHROMAX [Concomitant]
  3. MINOCYCLINE HCL [Concomitant]

REACTIONS (6)
  - ANOREXIA [None]
  - DYSPNOEA [None]
  - GROIN INFECTION [None]
  - NAUSEA [None]
  - RESPIRATORY TRACT CONGESTION [None]
  - WEIGHT DECREASED [None]
